FAERS Safety Report 8409479 (Version 3)
Quarter: 2013Q2

REPORT INFORMATION
  Report Type: Spontaneous
  Country: US (occurrence: US)
  Receive Date: 20120216
  Receipt Date: 20130501
  Transmission Date: 20140414
  Serious: Yes (Other)
  Sender: FDA-Public Use
  Company Number: US-MERCK-1202USA02277

PATIENT
  Sex: Female

DRUGS (2)
  1. FOSAMAX [Suspect]
     Dosage: UNK
     Route: 048
     Dates: start: 2003, end: 201009
  2. FOSAMAX PLUS D [Suspect]
     Route: 048

REACTIONS (13)
  - Femur fracture [Unknown]
  - Intramedullary rod insertion [Unknown]
  - Femur fracture [Unknown]
  - Intramedullary rod insertion [Unknown]
  - Endodontic procedure [Unknown]
  - Cataract [Unknown]
  - Fall [Unknown]
  - Osteoarthritis [Unknown]
  - Contusion [Unknown]
  - Osteoarthritis [Unknown]
  - Biopsy bone [Unknown]
  - Biopsy bone [Unknown]
  - Arthralgia [Unknown]
